FAERS Safety Report 5514985-3 (Version None)
Quarter: 2007Q4

REPORT INFORMATION
  Report Type: 
  Country: None (occurrence: None)
  Receive Date: 20071113
  Receipt Date: 20061102
  Transmission Date: 20080405
  Serious: No
  Sender: FDA-Public Use
  Company Number: A0626045A

PATIENT
  Age: 87 Year
  Sex: Female

DRUGS (7)
  1. COREG [Suspect]
     Dosage: 25MG TWICE PER DAY
     Route: 048
  2. DIGOXIN [Concomitant]
  3. FUROSEMIDE [Concomitant]
  4. SPIRONOLACTONE [Concomitant]
  5. ASPIRIN [Concomitant]
  6. NORVASC [Concomitant]
  7. FOSAMAX [Concomitant]

REACTIONS (1)
  - DYSPNOEA [None]
